FAERS Safety Report 4984173-8 (Version None)
Quarter: 2006Q2

REPORT INFORMATION
  Report Type: 
  Country: None (occurrence: None)
  Receive Date: 20060425
  Receipt Date: 20060425
  Transmission Date: 20061013
  Serious: No
  Sender: FDA-Public Use
  Company Number: None

PATIENT
  Age: 53 Year
  Sex: Male
  Weight: 100.56 kg

DRUGS (16)
  1. ASTELIN [Suspect]
     Dates: end: 20060401
  2. LOPRESSOR [Concomitant]
  3. LISINOPRIL [Concomitant]
  4. ASPIRIN [Concomitant]
  5. IMDUR [Concomitant]
  6. PLAVIX [Concomitant]
  7. ACTOS [Concomitant]
  8. CELEXA [Concomitant]
  9. RANITIDINE [Concomitant]
  10. TRICOR [Concomitant]
  11. PRAVACHOL [Concomitant]
  12. VOLTAREN [Concomitant]
  13. HYDROCHLOROTHIAZIDE [Concomitant]
  14. DARVOCET-N 100 [Concomitant]
  15. ASCORBIC ACID [Concomitant]
  16. CENTRUM [Concomitant]

REACTIONS (1)
  - BLOOD PRESSURE DIASTOLIC DECREASED [None]
